FAERS Safety Report 21773721 (Version 1)
Quarter: 2022Q4

REPORT INFORMATION
  Report Type: Spontaneous
  Country: JP (occurrence: JP)
  Receive Date: 20221223
  Receipt Date: 20221223
  Transmission Date: 20230113
  Serious: Yes (Hospitalization, Other)
  Sender: FDA-Public Use
  Company Number: JP-SA-2022SA512947

PATIENT
  Age: 18 Month
  Sex: Male

DRUGS (3)
  1. VIGABATRIN [Suspect]
     Active Substance: VIGABATRIN
     Indication: Epilepsy
     Dosage: 74 MG/KG, QD
     Route: 065
  2. ZONISAMIDE [Concomitant]
     Active Substance: ZONISAMIDE
     Indication: Seizure prophylaxis
     Dosage: UNK
     Route: 065
  3. NITRAZEPAM [Concomitant]
     Active Substance: NITRAZEPAM
     Indication: Seizure prophylaxis
     Dosage: UNK
     Route: 065

REACTIONS (5)
  - Cerebral disorder [Recovered/Resolved]
  - Altered state of consciousness [Recovered/Resolved]
  - Respiratory arrest [Recovered/Resolved]
  - Hypertonia [Recovered/Resolved]
  - Brain oedema [Recovered/Resolved]
